FAERS Safety Report 22159734 (Version 1)
Quarter: 2023Q1

REPORT INFORMATION
  Report Type: Other
  Country: US (occurrence: None)
  Receive Date: 20230331
  Receipt Date: 20230331
  Transmission Date: 20230417
  Serious: Yes (Other)
  Sender: FDA-Public Use
  Company Number: US-ROCHE-3318373

PATIENT
  Age: 74 Year
  Sex: Female

DRUGS (1)
  1. ALECENSA [Suspect]
     Active Substance: ALECTINIB HYDROCHLORIDE
     Indication: Bronchial carcinoma
     Dosage: TAKE 4 CAPSULE(S) BY MOUTH TWICE A DAY WITH MEALS
     Route: 048

REACTIONS (5)
  - Brain neoplasm malignant [Unknown]
  - Lung neoplasm malignant [Unknown]
  - Nausea [Unknown]
  - Balance disorder [Unknown]
  - Illness [Unknown]
